FAERS Safety Report 24605495 (Version 2)
Quarter: 2024Q4

REPORT INFORMATION
  Report Type: Spontaneous
  Country: US (occurrence: US)
  Receive Date: 20241111
  Receipt Date: 20241225
  Transmission Date: 20250115
  Serious: No
  Sender: SANOFI AVENTIS
  Company Number: US-SA-2024SA321897

PATIENT
  Sex: Female
  Weight: 104.32 kg

DRUGS (3)
  1. DUPIXENT [Suspect]
     Active Substance: DUPILUMAB
     Indication: Dermatitis atopic
     Dosage: 300 MG, QOW
     Route: 058
     Dates: start: 202406, end: 2024
  2. MIRABEGRON [Concomitant]
     Active Substance: MIRABEGRON
  3. HEATHER [Concomitant]
     Active Substance: NORETHINDRONE

REACTIONS (6)
  - Tinnitus [Unknown]
  - Ear discomfort [Unknown]
  - Visual impairment [Unknown]
  - Abdominal pain upper [Unknown]
  - Pruritus [Not Recovered/Not Resolved]
  - Therapeutic product effect decreased [Unknown]

NARRATIVE: CASE EVENT DATE: 20240101
